FAERS Safety Report 7284129-9 (Version None)
Quarter: 2011Q1

REPORT INFORMATION
  Report Type: 
  Country: None (occurrence: None)
  Receive Date: 20110209
  Receipt Date: 20110126
  Transmission Date: 20110831
  Serious: Yes (Hospitalization)
  Sender: FDA-Public Use
  Company Number: BE-CELGENEUS-013-C5013-08100094

PATIENT
  Sex: Female
  Weight: 57 kg

DRUGS (9)
  1. MELPHALAN [Suspect]
     Indication: MULTIPLE MYELOMA
     Route: 065
  2. MOTILIUM [Concomitant]
     Route: 065
  3. ZYLORIC [Concomitant]
     Dosage: 300
     Route: 065
  4. AMLODIPINE [Concomitant]
     Route: 065
  5. LORAZEPAM [Concomitant]
     Route: 065
  6. ASPIRIN [Concomitant]
     Route: 065
  7. CC-5013 [Suspect]
     Indication: MULTIPLE MYELOMA
     Route: 048
  8. PREDNISONE [Suspect]
     Indication: MULTIPLE MYELOMA
     Route: 065
  9. PLACEBO FOR CC-5013 [Suspect]
     Indication: MULTIPLE MYELOMA
     Route: 048
     Dates: start: 20070601

REACTIONS (1)
  - GENERAL PHYSICAL HEALTH DETERIORATION [None]
